FAERS Safety Report 7656910-5 (Version None)
Quarter: 2011Q3

REPORT INFORMATION
  Report Type: 
  Country: None (occurrence: None)
  Receive Date: 20110802
  Receipt Date: 20110718
  Transmission Date: 20111222
  Serious: Yes (Other)
  Sender: FDA-Public Use
  Company Number: JPI-P-012665

PATIENT
  Age: 40 Year
  Sex: Female

DRUGS (7)
  1. FOLIC ACID [Concomitant]
  2. METHYLPHENIDATE [Concomitant]
  3. XYREM [Suspect]
     Indication: PRODUCT USED FOR UNKNOWN INDICATION
     Dosage: 6 GM (6 GM, 1 IN 1 D), ORAL : 4 GM (4 GM, 1 IN 1 D), ORAL : 4.5 GM (4.5 GM, 1 IN 1 D), ORAL
     Route: 048
     Dates: start: 20100527, end: 20100617
  4. XYREM [Suspect]
     Indication: PRODUCT USED FOR UNKNOWN INDICATION
     Dosage: 6 GM (6 GM, 1 IN 1 D), ORAL : 4 GM (4 GM, 1 IN 1 D), ORAL : 4.5 GM (4.5 GM, 1 IN 1 D), ORAL
     Route: 048
     Dates: start: 20100311, end: 20100526
  5. XYREM [Suspect]
     Indication: PRODUCT USED FOR UNKNOWN INDICATION
     Dosage: 6 GM (6 GM, 1 IN 1 D), ORAL : 4 GM (4 GM, 1 IN 1 D), ORAL : 4.5 GM (4.5 GM, 1 IN 1 D), ORAL
     Route: 048
     Dates: start: 20100618, end: 20100727
  6. DOXYLAMINE SUCCINATE [Concomitant]
  7. LEVOTHYROXINE SODIUM [Concomitant]

REACTIONS (8)
  - AMNIORRHOEA [None]
  - CATAPLEXY [None]
  - GESTATIONAL DIABETES [None]
  - PREGNANCY [None]
  - MATERNAL EXPOSURE DURING PREGNANCY [None]
  - PHLEBITIS [None]
  - SCIATICA [None]
  - CAESAREAN SECTION [None]
